FAERS Safety Report 8862060 (Version 1)
Quarter: 2012Q4

REPORT INFORMATION
  Report Type: 
  Country: FR (occurrence: FR)
  Receive Date: 20121026
  Receipt Date: 20121026
  Transmission Date: 20130627
  Serious: Yes (Hospitalization, Other)
  Sender: FDA-Public Use
  Company Number: FR-PFIZER INC-2012260008

PATIENT
  Age: 17 Year
  Sex: Female

DRUGS (11)
  1. SOLU-MEDROL [Suspect]
     Indication: PREMEDICATION
     Dosage: 50 mg, single
     Route: 042
     Dates: start: 20120903, end: 20120903
  2. ATARAX [Suspect]
     Indication: ANXIETY
     Dosage: 25 mg, single
     Route: 048
     Dates: start: 20120903, end: 20120903
  3. METHOTREXATE TEVA [Suspect]
     Indication: BONE SARCOMA
     Dosage: 21 g, single
     Route: 042
     Dates: start: 20120903, end: 20120903
  4. CALCIDOSE [Concomitant]
  5. STEROGYL [Concomitant]
  6. LUTENYL [Concomitant]
  7. DUPHALAC [Concomitant]
  8. ZOPHREN [Concomitant]
  9. PLITICAN [Concomitant]
  10. XYLOCAINE [Concomitant]
  11. DOLIPRANE [Concomitant]

REACTIONS (2)
  - Renal failure [Recovered/Resolved]
  - Drug level increased [Recovered/Resolved]
